FAERS Safety Report 7568376-4 (Version None)
Quarter: 2011Q2

REPORT INFORMATION
  Report Type: 
  Country: None (occurrence: None)
  Receive Date: 20110617
  Receipt Date: 20110608
  Transmission Date: 20111010
  Serious: Yes (Other)
  Sender: FDA-Public Use
  Company Number: ACO_25137_2011

PATIENT
  Age: 42 Year
  Sex: Female

DRUGS (5)
  1. AMPYRA [Suspect]
     Indication: GAIT DISTURBANCE
     Dosage: 10 MG, Q 12 HRS
     Dates: start: 20100618, end: 20110601
  2. SERTRALINE HYDROCHLORIDE [Concomitant]
  3. AMANTADINE HCL [Suspect]
     Indication: PRODUCT USED FOR UNKNOWN INDICATION
     Dates: end: 20110101
  4. OXYBUTYNIN (OXYBUTYNIN) [Concomitant]
  5. REBIF [Concomitant]

REACTIONS (2)
  - GRAND MAL CONVULSION [None]
  - SKIN DISORDER [None]
